FAERS Safety Report 11214030 (Version 1)
Quarter: 2015Q2

REPORT INFORMATION
  Report Type: Spontaneous
  Country: GB (occurrence: GB)
  Receive Date: 20150623
  Receipt Date: 20150623
  Transmission Date: 20150821
  Serious: Yes (Hospitalization)
  Sender: FDA-Public Use
  Company Number: GB-SA-2015SA087844

PATIENT
  Age: 80 Year
  Sex: Female

DRUGS (7)
  1. PRIADEL [Suspect]
     Active Substance: LITHIUM CARBONATE
     Dosage: TAKE IN THE MORNING.
  2. ACEBUTOLOL [Concomitant]
     Active Substance: ACEBUTOLOL
     Dosage: TAKE IN THE MORNING.
  3. RISPERIDONE. [Concomitant]
     Active Substance: RISPERIDONE
  4. ATORVASTATIN [Concomitant]
     Active Substance: ATORVASTATIN
     Dosage: TAKE AT NIGHT.
  5. FUROSEMIDE. [Suspect]
     Active Substance: FUROSEMIDE
     Dosage: TAKE IN THE MORNING.
     Route: 065
  6. ASPIRIN. [Concomitant]
     Active Substance: ASPIRIN
     Dosage: TAKE IN THE MORNING.
  7. LORAZEPAM. [Concomitant]
     Active Substance: LORAZEPAM

REACTIONS (4)
  - Agitation [Unknown]
  - Toxicity to various agents [Recovering/Resolving]
  - Tremor [Unknown]
  - Hypophagia [Unknown]
